FAERS Safety Report 23544582 (Version 1)
Quarter: 2024Q1

REPORT INFORMATION
  Report Type: Spontaneous
  Country: BE (occurrence: BE)
  Receive Date: 20240220
  Receipt Date: 20240220
  Transmission Date: 20240410
  Serious: Yes (Other)
  Sender: FDA-Public Use
  Company Number: BE-BAYER-2024A023923

PATIENT
  Age: 61 Year
  Sex: Female

DRUGS (1)
  1. ULTRAVIST [Suspect]
     Active Substance: IOPROMIDE
     Indication: Computerised tomogram heart
     Dosage: 100 ML, ONCE
     Dates: start: 20240207, end: 20240207

REACTIONS (6)
  - Rash erythematous [None]
  - Blister [None]
  - Pruritus [None]
  - Dyspnoea [None]
  - Contrast media allergy [None]
  - Throat tightness [None]

NARRATIVE: CASE EVENT DATE: 20240207
